FAERS Safety Report 22234970 (Version 1)
Quarter: 2023Q2

REPORT INFORMATION
  Report Type: Other
  Country: CA (occurrence: CA)
  Receive Date: 20230420
  Receipt Date: 20230420
  Transmission Date: 20230722
  Serious: Yes (Hospitalization)
  Sender: FDA-Public Use
  Company Number: CA-PFIZER INC-202300159529

PATIENT
  Age: 26 Year
  Sex: Female

DRUGS (8)
  1. HYDROCORTISONE [Suspect]
     Active Substance: HYDROCORTISONE
     Indication: Trichophytosis
     Dosage: 1 %
     Route: 061
  2. HYDROCORTISONE [Suspect]
     Active Substance: HYDROCORTISONE
     Indication: Fungal infection
     Dosage: UNK
  3. CICLOPIROX [Suspect]
     Active Substance: CICLOPIROX
     Indication: Trichophytosis
     Dosage: UNK
  4. CICLOPIROX [Suspect]
     Active Substance: CICLOPIROX
     Indication: Fungal infection
     Dosage: UNK
     Route: 061
  5. ITRACONAZOLE [Suspect]
     Active Substance: ITRACONAZOLE
     Indication: Trichophytosis
     Dosage: 100 MG, 1X/DAY
     Route: 048
  6. ITRACONAZOLE [Suspect]
     Active Substance: ITRACONAZOLE
     Indication: Fungal infection
     Dosage: UNK
  7. TERBINAFINE [Suspect]
     Active Substance: TERBINAFINE
     Indication: Trichophytosis
     Route: 065
  8. TERBINAFINE [Suspect]
     Active Substance: TERBINAFINE
     Indication: Fungal infection

REACTIONS (5)
  - Fungal infection [Unknown]
  - Condition aggravated [Unknown]
  - Drug ineffective [Unknown]
  - Off label use [Unknown]
  - Contraindicated product administered [Unknown]
